FAERS Safety Report 25538719 (Version 2)
Quarter: 2025Q3

REPORT INFORMATION
  Report Type: Spontaneous
  Country: US (occurrence: US)
  Receive Date: 20250710
  Receipt Date: 20250714
  Transmission Date: 20251021
  Serious: No
  Sender: SANOFI AVENTIS
  Company Number: US-SANOFI-02581842

PATIENT
  Age: 89 Year
  Sex: Female

DRUGS (7)
  1. LANTUS SOLOSTAR [Suspect]
     Active Substance: INSULIN GLARGINE
     Indication: Diabetes mellitus
     Dosage: 17 IU, QD
     Route: 065
     Dates: end: 20250704
  2. LANTUS SOLOSTAR [Suspect]
     Active Substance: INSULIN GLARGINE
     Dosage: 16 IU, QD
     Route: 065
     Dates: start: 20250705, end: 20250706
  3. LANTUS SOLOSTAR [Suspect]
     Active Substance: INSULIN GLARGINE
     Dosage: 15 IU, QD
     Route: 065
     Dates: start: 20250707
  4. SEMAGLUTIDE [Suspect]
     Active Substance: SEMAGLUTIDE
     Dates: end: 20250627
  5. NOVOLOG [Concomitant]
     Active Substance: INSULIN ASPART
     Indication: Diabetes mellitus
     Dosage: 17 IU, TID
     Dates: end: 20250704
  6. NOVOLOG [Concomitant]
     Active Substance: INSULIN ASPART
     Dosage: 16 IU, TID
     Dates: start: 20250705, end: 20250706
  7. NOVOLOG [Concomitant]
     Active Substance: INSULIN ASPART
     Dosage: 6 IU, TID
     Dates: start: 20250707

REACTIONS (3)
  - Pancreatic disorder [Unknown]
  - Blood glucose increased [Recovered/Resolved]
  - Device defective [Unknown]
